FAERS Safety Report 17676725 (Version 1)
Quarter: 2020Q2

REPORT INFORMATION
  Report Type: Spontaneous
  Country: US (occurrence: US)
  Receive Date: 20200416
  Receipt Date: 20200416
  Transmission Date: 20200714
  Serious: No
  Sender: FDA-Public Use
  Company Number: None

PATIENT
  Age: 66 Year
  Sex: Female
  Weight: 93.15 kg

DRUGS (5)
  1. DROPSORDRY [Concomitant]
  2. ALPHALPHA [Concomitant]
  3. DICLOFENAC [Suspect]
     Active Substance: DICLOFENAC
     Indication: ARTHRITIS
     Dosage: ?          QUANTITY:1 TABLET(S);?
     Route: 048
  4. PASSION FLOWER [Concomitant]
     Active Substance: HERBALS\HOMEOPATHICS\PASSIFLORA INCARNATA FLOWER
  5. WATER PILL [Concomitant]
     Active Substance: UNSPECIFIED INGREDIENT

REACTIONS (8)
  - Decreased appetite [None]
  - Peripheral swelling [None]
  - Impulsive behaviour [None]
  - Drug hypersensitivity [None]
  - Functional gastrointestinal disorder [None]
  - Abdominal discomfort [None]
  - Headache [None]
  - Abdominal distension [None]
